FAERS Safety Report 18603704 (Version 2)
Quarter: 2020Q4

REPORT INFORMATION
  Report Type: Other
  Country: CA (occurrence: CA)
  Receive Date: 20201211
  Receipt Date: 20201217
  Transmission Date: 20210114
  Serious: Yes (Hospitalization, Other)
  Sender: FDA-Public Use
  Company Number: CA-ROCHE-1193219

PATIENT
  Age: 65 Year
  Sex: Female
  Weight: 56.2 kg

DRUGS (21)
  1. CALCIUM [Concomitant]
     Active Substance: CALCIUM
  2. METHOTREXATE. [Suspect]
     Active Substance: METHOTREXATE
     Indication: RHEUMATOID ARTHRITIS
     Route: 058
  3. DETROL [Concomitant]
     Active Substance: TOLTERODINE TARTRATE
  4. ACETAMINOPHEN. [Concomitant]
     Active Substance: ACETAMINOPHEN
     Indication: PREMEDICATION
     Route: 048
     Dates: start: 20130204
  5. CIPRO [Suspect]
     Active Substance: CIPROFLOXACIN HYDROCHLORIDE
     Indication: PYELONEPHRITIS
     Route: 065
  6. HYDROXYCHLOROQUINE [Concomitant]
     Active Substance: HYDROXYCHLOROQUINE
  7. ADALAT [Concomitant]
     Active Substance: NIFEDIPINE
     Indication: BLOOD PRESSURE MEASUREMENT
  8. RISEDRONATE [Concomitant]
     Active Substance: RISEDRONATE SODIUM
  9. METHYLPREDNISOLONE. [Concomitant]
     Active Substance: METHYLPREDNISOLONE
     Indication: PREMEDICATION
     Route: 042
     Dates: start: 20130204
  10. PLAQUENIL [Concomitant]
     Active Substance: HYDROXYCHLOROQUINE SULFATE
  11. RITUXAN [Suspect]
     Active Substance: RITUXIMAB
     Indication: SJOGREN^S SYNDROME
     Dosage: PREVIOUS DOSE WAS ON 26/SEP/2013?LAST INFUSION 10/SEP/2020.
     Route: 041
     Dates: start: 20130204
  12. IMURAN [Concomitant]
     Active Substance: AZATHIOPRINE
  13. PREDNISONE. [Concomitant]
     Active Substance: PREDNISONE
  14. REFRESH PLUS [Concomitant]
     Active Substance: CARBOXYMETHYLCELLULOSE SODIUM
  15. LACRI-LUBE [Concomitant]
  16. RESTASIS [Concomitant]
     Active Substance: CYCLOSPORINE
  17. RITUXAN [Suspect]
     Active Substance: RITUXIMAB
     Indication: VASCULITIS
  18. SALAGEN [Concomitant]
     Active Substance: PILOCARPINE HYDROCHLORIDE
  19. DIPHENHYDRAMINE HCL [Concomitant]
     Active Substance: DIPHENHYDRAMINE HYDROCHLORIDE
     Indication: PREMEDICATION
     Route: 048
     Dates: start: 20130204
  20. SYSTANE (HYPROMELLOSE 2910 (4000 MPA.S)) [Concomitant]
     Active Substance: HYPROMELLOSE 2910 (4000 MPA.S)
  21. METHOTREXATE. [Suspect]
     Active Substance: METHOTREXATE
     Indication: SJOGREN^S SYNDROME

REACTIONS (30)
  - Body temperature fluctuation [Not Recovered/Not Resolved]
  - Drug ineffective [Unknown]
  - Heart rate decreased [Not Recovered/Not Resolved]
  - Dizziness [Unknown]
  - Pyelonephritis [Not Recovered/Not Resolved]
  - Infusion related reaction [Unknown]
  - Gait disturbance [Not Recovered/Not Resolved]
  - Acne [Recovered/Resolved]
  - Arthropathy [Not Recovered/Not Resolved]
  - Blood pressure systolic abnormal [Unknown]
  - Escherichia urinary tract infection [Unknown]
  - Hypotension [Unknown]
  - Nausea [Not Recovered/Not Resolved]
  - Blood pressure diastolic decreased [Unknown]
  - Skin disorder [Not Recovered/Not Resolved]
  - Hypoaesthesia [Not Recovered/Not Resolved]
  - Blood pressure diastolic abnormal [Unknown]
  - Urinary tract infection [Not Recovered/Not Resolved]
  - Intentional product use issue [Unknown]
  - Vasculitis [Recovering/Resolving]
  - Fatigue [Unknown]
  - Urinary tract infection [Unknown]
  - Off label use [Unknown]
  - Myalgia [Not Recovered/Not Resolved]
  - Dyspnoea [Not Recovered/Not Resolved]
  - Blood pressure systolic decreased [Unknown]
  - Discomfort [Not Recovered/Not Resolved]
  - Body temperature decreased [Unknown]
  - Blood pressure fluctuation [Unknown]
  - Musculoskeletal chest pain [Not Recovered/Not Resolved]

NARRATIVE: CASE EVENT DATE: 20130207
